FAERS Safety Report 14818794 (Version 1)
Quarter: 2018Q2

REPORT INFORMATION
  Report Type: Spontaneous
  Country: BR (occurrence: BR)
  Receive Date: 20180427
  Receipt Date: 20180427
  Transmission Date: 20180711
  Serious: Yes (Other)
  Sender: FDA-Public Use
  Company Number: BR-DRREDDYS-USA/BRA/18/0098184

PATIENT
  Age: 34 Year
  Sex: Female
  Weight: 39 kg

DRUGS (9)
  1. CAPECITABINE. [Suspect]
     Active Substance: CAPECITABINE
     Indication: METASTATIC GASTRIC CANCER
  2. CAPECITABINE. [Suspect]
     Active Substance: CAPECITABINE
     Indication: ADENOCARCINOMA GASTRIC
     Dosage: TWICE A DAY WAS ADMINISTERED FROM DAY 1 TO DAY 14. CYCLES WERE REPEATED EVERY 21 DAYS.
     Route: 048
  3. CAPECITABINE. [Suspect]
     Active Substance: CAPECITABINE
     Indication: METASTASES TO PERITONEUM
  4. CISPLATIN. [Suspect]
     Active Substance: CISPLATIN
     Indication: ADENOCARCINOMA GASTRIC
     Dosage: ON DAY 1. CYCLES WERE REPEATED EVERY 21 DAYS; FOR 1 H AT 42 DEGREE C
     Route: 042
  5. CISPLATIN. [Suspect]
     Active Substance: CISPLATIN
     Indication: METASTATIC GASTRIC CANCER
     Dosage: ON DAY 8. CYCLES WERE REPEATED EVERY 21 DAYS.
     Route: 042
  6. DOCETAXEL. [Suspect]
     Active Substance: DOCETAXEL
     Indication: METASTASES TO PERITONEUM
  7. DOCETAXEL. [Suspect]
     Active Substance: DOCETAXEL
     Indication: METASTATIC GASTRIC CANCER
     Dosage: ON DAY 1. CYCLES WERE REPEATED EVERY 21 DAYS.
     Route: 042
  8. CISPLATIN. [Suspect]
     Active Substance: CISPLATIN
     Indication: METASTASES TO PERITONEUM
  9. DOCETAXEL. [Suspect]
     Active Substance: DOCETAXEL
     Indication: ADENOCARCINOMA GASTRIC
     Dosage: ON DAY 8. CYCLES WERE REPEATED EVERY 21 DAYS.
     Route: 042

REACTIONS (11)
  - Decreased appetite [Unknown]
  - Alopecia [Unknown]
  - Anaemia [Unknown]
  - Diarrhoea [Unknown]
  - Fatigue [Unknown]
  - Vomiting [Unknown]
  - Upper respiratory tract infection [Unknown]
  - Toxicity to various agents [Unknown]
  - Haematotoxicity [Unknown]
  - Constipation [Unknown]
  - Nausea [Unknown]
